FAERS Safety Report 9156394 (Version 1)
Quarter: 2013Q1

REPORT INFORMATION
  Report Type: Spontaneous
  Country: US (occurrence: US)
  Receive Date: 20130312
  Receipt Date: 20130312
  Transmission Date: 20140127
  Serious: No
  Sender: FDA-Public Use
  Company Number: US-BIOGENIDEC-2013BI009453

PATIENT
  Age: 61 Year
  Sex: Female

DRUGS (5)
  1. AVONEX [Suspect]
     Indication: MULTIPLE SCLEROSIS
     Route: 030
     Dates: start: 19981101, end: 20090528
  2. AVONEX [Suspect]
     Indication: MULTIPLE SCLEROSIS
     Route: 030
     Dates: start: 20120818, end: 20120827
  3. AVONEX [Suspect]
     Indication: MULTIPLE SCLEROSIS
     Route: 030
     Dates: start: 20120901
  4. AVONEX [Suspect]
     Indication: MULTIPLE SCLEROSIS
     Route: 030
     Dates: start: 201209
  5. KEFLEX [Concomitant]
     Indication: PHARYNGITIS STREPTOCOCCAL

REACTIONS (6)
  - Balance disorder [Not Recovered/Not Resolved]
  - Aphasia [Unknown]
  - Coordination abnormal [Not Recovered/Not Resolved]
  - Headache [Recovered/Resolved]
  - Neck pain [Not Recovered/Not Resolved]
  - Influenza like illness [Recovered/Resolved]
